FAERS Safety Report 6867860-6 (Version None)
Quarter: 2010Q3

REPORT INFORMATION
  Report Type: 
  Country: None (occurrence: None)
  Receive Date: 20100722
  Receipt Date: 20080507
  Transmission Date: 20110219
  Serious: No
  Sender: FDA-Public Use
  Company Number: US-PFIZER INC-2008040411

PATIENT
  Sex: Male
  Weight: 80.7 kg

DRUGS (1)
  1. CHANTIX [Suspect]
     Dates: start: 20080101

REACTIONS (1)
  - THERAPEUTIC RESPONSE UNEXPECTED [None]
